FAERS Safety Report 18207471 (Version 1)
Quarter: 2020Q3

REPORT INFORMATION
  Report Type: Spontaneous
  Country: US (occurrence: US)
  Receive Date: 20200827
  Receipt Date: 20200827
  Transmission Date: 20201103
  Serious: Yes (Death)
  Sender: FDA-Public Use
  Company Number: None

PATIENT
  Age: 83 Year
  Sex: Female

DRUGS (12)
  1. OPSUMIT [Suspect]
     Active Substance: MACITENTAN
     Indication: PULMONARY HYPERTENSION
     Route: 048
     Dates: start: 201808, end: 202007
  2. FUROSEMIDE. [Suspect]
     Active Substance: FUROSEMIDE
  3. METOLAZONE. [Suspect]
     Active Substance: METOLAZONE
  4. TADALAFIL. [Suspect]
     Active Substance: TADALAFIL
  5. CARVEDILOL. [Suspect]
     Active Substance: CARVEDILOL
  6. CINACALCET. [Suspect]
     Active Substance: CINACALCET
  7. LEVOTHYROXINE. [Suspect]
     Active Substance: LEVOTHYROXINE
  8. COLCHICINE. [Suspect]
     Active Substance: COLCHICINE
  9. FERROUS SULFATE. [Suspect]
     Active Substance: FERROUS SULFATE
  10. ESTRADIOL. [Suspect]
     Active Substance: ESTRADIOL
  11. VITAMIN D3 [Suspect]
     Active Substance: CHOLECALCIFEROL
  12. CALCITRIOL. [Suspect]
     Active Substance: CALCITRIOL

REACTIONS (6)
  - Condition aggravated [None]
  - Fall [None]
  - Acute kidney injury [None]
  - Cardiac failure congestive [None]
  - Weight increased [None]
  - Hyponatraemia [None]

NARRATIVE: CASE EVENT DATE: 20200717
